FAERS Safety Report 15244728 (Version 1)
Quarter: 2018Q3

REPORT INFORMATION
  Report Type: Spontaneous
  Country: US (occurrence: US)
  Receive Date: 20180712
  Receipt Date: 20180712
  Transmission Date: 20181010
  Serious: No
  Sender: FDA-Public Use
  Company Number: None

PATIENT
  Age: 68 Year
  Sex: Male

DRUGS (2)
  1. TRUVADA [Concomitant]
     Active Substance: EMTRICITABINE\TENOFOVIR DISOPROXIL FUMARATE
  2. SUSTIVA [Suspect]
     Active Substance: EFAVIRENZ

REACTIONS (3)
  - Renal injury [None]
  - Renal disorder [None]
  - Rheumatoid arthritis [None]

NARRATIVE: CASE EVENT DATE: 20180712
